FAERS Safety Report 8519243-0 (Version None)
Quarter: 2012Q3

REPORT INFORMATION
  Report Type: 
  Country: None (occurrence: None)
  Receive Date: 20120718
  Receipt Date: 20120713
  Transmission Date: 20120928
  Serious: Yes (Other)
  Sender: FDA-Public Use
  Company Number: US-GILEAD-2012-0057456

PATIENT
  Sex: Female

DRUGS (3)
  1. VENTAVIS [Concomitant]
  2. LETAIRIS [Suspect]
     Indication: PRODUCT USED FOR UNKNOWN INDICATION
     Dosage: 10 MG, UNK
     Route: 048
     Dates: start: 20120404, end: 20120713
  3. ADCIRCA [Concomitant]

REACTIONS (2)
  - PREGNANCY [None]
  - MATERNAL EXPOSURE DURING PREGNANCY [None]
